FAERS Safety Report 11685580 (Version 6)
Quarter: 2016Q1

REPORT INFORMATION
  Report Type: Spontaneous
  Country: US (occurrence: US)
  Receive Date: 20151030
  Receipt Date: 20160311
  Transmission Date: 20160525
  Serious: Yes (Hospitalization)
  Sender: FDA-Public Use
  Company Number: US-JNJFOC-20151019247

PATIENT
  Age: 71 Year
  Sex: Male

DRUGS (2)
  1. XTANDI [Suspect]
     Active Substance: ENZALUTAMIDE
     Indication: PROSTATE CANCER
     Route: 048
     Dates: start: 20150816, end: 201508
  2. ZYTIGA [Suspect]
     Active Substance: ABIRATERONE ACETATE
     Indication: PRODUCT USED FOR UNKNOWN INDICATION
     Route: 048
     Dates: end: 201508

REACTIONS (9)
  - Cardiac failure congestive [Recovering/Resolving]
  - Back pain [Not Recovered/Not Resolved]
  - Prostatic specific antigen increased [Unknown]
  - Pain [Unknown]
  - Discomfort [Not Recovered/Not Resolved]
  - Malaise [Unknown]
  - Oedema [Recovered/Resolved]
  - Therapeutic response decreased [Unknown]
  - Hospitalisation [Unknown]

NARRATIVE: CASE EVENT DATE: 201509
